FAERS Safety Report 15819779 (Version 1)
Quarter: 2019Q1

REPORT INFORMATION
  Report Type: Report from Study
  Country: GB (occurrence: GB)
  Receive Date: 20190114
  Receipt Date: 20190114
  Transmission Date: 20190417
  Serious: Yes (Hospitalization)
  Sender: FDA-Public Use
  Company Number: GB-BAXTER-2019BAX000104

PATIENT
  Age: 64 Year

DRUGS (5)
  1. PIPERACILLIN/TAZOBACTAM [Suspect]
     Active Substance: PIPERACILLIN SODIUM\TAZOBACTAM SODIUM
     Indication: PRODUCT USED FOR UNKNOWN INDICATION
     Route: 042
     Dates: start: 201812, end: 20181231
  2. TEICOPLANIN [Suspect]
     Active Substance: TEICOPLANIN
     Indication: PRODUCT USED FOR UNKNOWN INDICATION
     Dosage: PICC/MIDLINE 6 WEEKS TOTAL COURSE AND PRESUMED END DATE- 14JAN2018
     Route: 042
     Dates: start: 20181203, end: 20181231
  3. TAZOCIN [Suspect]
     Active Substance: PIPERACILLIN SODIUM\TAZOBACTAM SODIUM
     Indication: PRODUCT USED FOR UNKNOWN INDICATION
     Dosage: PICC/MIDLINE, 6 WEEKS TOTAL COURSE AND PRESUMED END DATE- 14JAN2018
     Route: 042
     Dates: start: 20181203, end: 20181231
  4. SODIUM CHLORIDE 0.9% INTRAVENOUS INFUSION BP [Suspect]
     Active Substance: SODIUM CHLORIDE
     Indication: MEDICATION DILUTION
     Route: 042
     Dates: start: 201812, end: 20181231
  5. CITRATE BUFFER [Suspect]
     Active Substance: SODIUM CITRATE
     Indication: MEDICATION DILUTION
     Dosage: PH 6.5-7.5
     Route: 042
     Dates: start: 201812, end: 20181231

REACTIONS (3)
  - Rash pruritic [Unknown]
  - Rash erythematous [Unknown]
  - Rash [Unknown]

NARRATIVE: CASE EVENT DATE: 20181227
